FAERS Safety Report 5662897-7 (Version None)
Quarter: 2008Q1

REPORT INFORMATION
  Report Type: 
  Country: None (occurrence: None)
  Receive Date: 20080311
  Receipt Date: 20080311
  Transmission Date: 20080703
  Serious: Yes (Death, Life-Threatening, Hospitalization, Other)
  Sender: FDA-Public Use
  Company Number: None

PATIENT
  Age: 45 Year
  Sex: Male
  Weight: 95.2554 kg

DRUGS (1)
  1. CHANTIX [Suspect]
     Indication: SMOKING CESSATION THERAPY
     Dosage: 1/2 MG FOR 1 WEEK THEN 1 MG DAILY PO
     Route: 048
     Dates: start: 20071201, end: 20080202

REACTIONS (8)
  - ABNORMAL BEHAVIOUR [None]
  - AGITATION [None]
  - ANGER [None]
  - ASPHYXIA [None]
  - COMPLETED SUICIDE [None]
  - CRYING [None]
  - FLIGHT OF IDEAS [None]
  - NERVOUSNESS [None]
